FAERS Safety Report 25593846 (Version 1)
Quarter: 2025Q3

REPORT INFORMATION
  Report Type: Spontaneous
  Country: US (occurrence: US)
  Receive Date: 20250723
  Receipt Date: 20250723
  Transmission Date: 20251020
  Serious: No
  Sender: BAXTER
  Company Number: US-BAXTER-2025BAX018529

PATIENT
  Sex: Male

DRUGS (2)
  1. SODIUM CHLORIDE [Suspect]
     Active Substance: SODIUM CHLORIDE
     Indication: Medication dilution
     Route: 065
  2. NOREPINEPHRINE [Suspect]
     Active Substance: NOREPINEPHRINE
     Indication: Hypotension
     Route: 065

REACTIONS (2)
  - Drug ineffective [Unknown]
  - Device infusion issue [Unknown]
